FAERS Safety Report 9348603 (Version 1)
Quarter: 2013Q2

REPORT INFORMATION
  Report Type: Spontaneous
  Country: US (occurrence: US)
  Receive Date: 20130614
  Receipt Date: 20130614
  Transmission Date: 20140414
  Serious: No
  Sender: FDA-Public Use
  Company Number: US-PFIZER INC-2013176142

PATIENT
  Age: 60 Year
  Sex: Female
  Weight: 77.1 kg

DRUGS (17)
  1. XELJANZ [Suspect]
     Dosage: 5 MG, 2X/DAY
     Route: 048
  2. HUMALOG MIX [Concomitant]
     Dosage: UNK, HUMALOG MIX SUS 75/25
  3. AMLODIPINE [Concomitant]
     Dosage: 5 MG, UNK
  4. LIPITOR [Concomitant]
     Dosage: 10 MG, UNK
  5. LANTUS [Concomitant]
     Dosage: UNK, 100/ML
  6. LEFLUNOMIDE [Concomitant]
     Dosage: 20 MG, UNK
  7. METFORMIN [Concomitant]
     Dosage: 500 MG, UNK
  8. LISINOPRIL [Concomitant]
     Dosage: 5 MG, UNK
  9. METOPROLOL [Concomitant]
     Dosage: 25 MG, UNK (ER)
  10. VITAMIN C [Concomitant]
     Dosage: 500 MG, UNK
  11. VESICARE [Concomitant]
     Dosage: 5 MG, UNK
  12. FOLIC ACID [Concomitant]
     Dosage: UNK
  13. OMEGA 3 [Concomitant]
     Dosage: 1000 MG, UNK
  14. BABY ASPIRIN [Concomitant]
     Dosage: 81 MG, UNK
  15. VITAMIN B12 [Concomitant]
     Dosage: 100 UG, UNK
  16. CARBIDOPA/ENTACAPONE/LEVODOPA [Concomitant]
     Dosage: UNK
  17. HYDROCHLOROTHIAZIDE WITH TRIAMTERENE [Concomitant]
     Dosage: UNK, HYDROCHLOROTHIAZIDE 50MG/TRIAMTERENE 75 MG

REACTIONS (1)
  - Drug ineffective [Unknown]
